FAERS Safety Report 10230458 (Version 3)
Quarter: 2014Q3

REPORT INFORMATION
  Report Type: Spontaneous
  Country: US (occurrence: US)
  Receive Date: 20140611
  Receipt Date: 20140912
  Transmission Date: 20150326
  Serious: Yes (Hospitalization, Other)
  Sender: FDA-Public Use
  Company Number: US-INCYTE CORPORATION-2014IN000884

PATIENT
  Age: 59 Year
  Sex: Female
  Weight: 60.32 kg

DRUGS (33)
  1. ALBUTEROL                          /00139501/ [Concomitant]
     Active Substance: ALBUTEROL
     Dosage: INHALE 2 PUFFS FOUR TIMES DAILY
  2. BISACODYL. [Concomitant]
     Active Substance: BISACODYL
     Dosage: PRN
  3. LANTUS [Concomitant]
     Active Substance: INSULIN GLARGINE
     Dosage: INJECT 34 UNITS AT BEDTIME OR AS DIRECTED
  4. PRILOSEC [Concomitant]
     Active Substance: OMEPRAZOLE MAGNESIUM
     Dosage: 20 MG, QD
     Route: 048
  5. HUMALOG [Concomitant]
     Active Substance: INSULIN LISPRO
  6. FOLIC ACID. [Concomitant]
     Active Substance: FOLIC ACID
     Dosage: 1 UNK, UNK
  7. DOCUSATE CALCIUM. [Concomitant]
     Active Substance: DOCUSATE CALCIUM
     Dosage: AS NEEDED
     Route: 048
  8. ADVAIR HFA [Concomitant]
     Active Substance: FLUTICASONE PROPIONATE\SALMETEROL XINAFOATE
     Dosage: INHALE 1 PUFF BID
  9. TYLENOL PM, EXTRA STRENGTH [Concomitant]
     Dosage: PRN
  10. ANTIVERT                           /00072802/ [Concomitant]
     Dosage: PRN
  11. MAGNESIUM HYDROXIDE. [Concomitant]
     Active Substance: MAGNESIUM HYDROXIDE
  12. DIPHENHYDRAMINE [Concomitant]
     Active Substance: DIPHENHYDRAMINE
  13. JAKAFI [Suspect]
     Active Substance: RUXOLITINIB
     Dosage: 15 MG, BID
     Route: 048
     Dates: start: 201403
  14. JAKAFI [Suspect]
     Active Substance: RUXOLITINIB
     Dosage: 20 MG, BID
     Route: 048
  15. LISINOPRIL. [Concomitant]
     Active Substance: LISINOPRIL
     Indication: HYPERTENSION
     Dosage: UNK MG, UNK
     Route: 048
  16. ZOLPIDEM TARTRATE. [Concomitant]
     Active Substance: ZOLPIDEM TARTRATE
     Dosage: 10 MG, AT BEDTIME PRN SLEEP
  17. ZITHROMAX [Concomitant]
     Active Substance: AZITHROMYCIN DIHYDRATE
     Dosage: TAKE 2 TABLETS ON DAY 1, FOLLOWED BY 1 TABLET ONCE DAILY ON DAYS 2 THROUGH 5
  18. VITAMIN D [Concomitant]
     Active Substance: CHOLECALCIFEROL
     Dosage: 1000 IU, QD
     Route: 048
  19. TEMOVATE [Concomitant]
     Active Substance: CLOBETASOL PROPIONATE
     Dosage: APPLY TOPICALLY TWO TIMES DAILY PRN
  20. KENALOG                            /00031902/ [Concomitant]
     Dosage: APPLY TOPICALLY TWO TIMES A DAY PRN
  21. SIMVASTATIN. [Concomitant]
     Active Substance: SIMVASTATIN
     Dosage: 1 TABLET IN THE EVENING
  22. JAKAFI [Suspect]
     Active Substance: RUXOLITINIB
     Indication: MYELOFIBROSIS
     Dosage: 20 MG, BID
     Route: 048
     Dates: start: 20120620, end: 201403
  23. METFORMIN [Concomitant]
     Active Substance: METFORMIN HYDROCHLORIDE
     Dosage: 1000 MG, BID
  24. FLUTICASONE PROPIONATE. [Concomitant]
     Active Substance: FLUTICASONE PROPIONATE
     Dosage: 2 SPRAYS DAILY
     Route: 045
  25. ASPIRIN. [Concomitant]
     Active Substance: ASPIRIN
     Dosage: 81 MG, QD
     Route: 048
  26. CLEOCIN T [Concomitant]
     Active Substance: CLINDAMYCIN PHOSPHATE
     Dosage: APPLY TOPICALLY TWO TIMES DAILY PRN
  27. TRI-LUMA [Concomitant]
     Active Substance: FLUOCINOLONE ACETONIDE\HYDROQUINONE\TRETINOIN
     Dosage: APPLY 1 APPLICATION TOPICALLY DAILY TO BROWN SPOTS ON FACE
  28. PHENERGAN [Concomitant]
     Active Substance: PROMETHAZINE HYDROCHLORIDE
     Dosage: 25 MG PO Q SIX HOURS PRN
     Route: 048
  29. NOVOLOG [Concomitant]
     Active Substance: INSULIN ASPART
     Dosage: INJECT UP TO 15 UNITS WITH EACH MEAL (TOTAL 45 UNITS PER DAY)
  30. VITAMIN B12 [Concomitant]
     Active Substance: CYANOCOBALAMIN
     Dosage: 1 TABLET PO DAILY
  31. VOLTAREN [Concomitant]
     Active Substance: DICLOFENAC SODIUM
     Dosage: PLACE ONTO THE SKIN FOUR TIMES A DAY AS NEEDED
  32. GLYCOLAX [Concomitant]
     Active Substance: POLYETHYLENE GLYCOL 3350
     Dosage: 17 G, PRN
     Route: 048
  33. NYSTATIN. [Concomitant]
     Active Substance: NYSTATIN

REACTIONS (10)
  - Red blood cell count decreased [Not Recovered/Not Resolved]
  - Anaemia [Not Recovered/Not Resolved]
  - Malaise [Not Recovered/Not Resolved]
  - Haematocrit decreased [Not Recovered/Not Resolved]
  - Fatigue [Not Recovered/Not Resolved]
  - White blood cell count decreased [Not Recovered/Not Resolved]
  - Hot flush [Not Recovered/Not Resolved]
  - Dizziness [Not Recovered/Not Resolved]
  - Memory impairment [Not Recovered/Not Resolved]
  - Iron overload [Not Recovered/Not Resolved]

NARRATIVE: CASE EVENT DATE: 201206
